FAERS Safety Report 7083097-2 (Version None)
Quarter: 2010Q4

REPORT INFORMATION
  Report Type: 
  Country: None (occurrence: None)
  Receive Date: 20101104
  Receipt Date: 20101025
  Transmission Date: 20110411
  Serious: Yes (Other)
  Sender: FDA-Public Use
  Company Number: US-BAYER-201039259NA

PATIENT
  Age: 25 Year
  Sex: Female

DRUGS (2)
  1. YAZ [Suspect]
     Indication: PRODUCT USED FOR UNKNOWN INDICATION
     Dates: start: 20060725, end: 20060908
  2. YAZ [Suspect]
     Dates: start: 20080107, end: 20100201

REACTIONS (1)
  - CEREBROVASCULAR ACCIDENT [None]
